FAERS Safety Report 9143519 (Version 4)
Quarter: 2013Q1

REPORT INFORMATION
  Report Type: Spontaneous
  Country: GB (occurrence: GB)
  Receive Date: 20130306
  Receipt Date: 20130326
  Transmission Date: 20140127
  Serious: Yes (Death, Other)
  Sender: FDA-Public Use
  Company Number: PHFR2013GB001518

PATIENT
  Age: 55 Year
  Sex: Male

DRUGS (21)
  1. CLOZARIL [Suspect]
     Indication: SCHIZOPHRENIA
     Dosage: UNK
     Dates: start: 20080201
  2. HYPNOVEL [Concomitant]
     Indication: AGITATION
     Dosage: 0.5 TO 1 ML 4 TO 6 HRLY
  3. HYPNOVEL [Concomitant]
     Dosage: UNK
  4. LACTULOSE [Concomitant]
     Dosage: 3.1 TO 3.7 G / 5 ML 5 TO 15 ML BD PRN
  5. SENNA [Concomitant]
     Dosage: 1 OR 2 N PRN
  6. VALOID INJECTION [Concomitant]
     Indication: VOMITING
     Dosage: 1 ML 8 HOURLY
     Route: 030
  7. HYOSCINE HYDROBROMIDE [Concomitant]
     Dosage: 400 UG/ 1 ML AMPOULE 6 HRLY PRN
  8. CO-DANTHRAMER [Concomitant]
     Dosage: 37.5 MG + 500 MG , 1 TO 2 NOCTE
  9. FLEET ENEMA [Concomitant]
     Dosage: 133 ML, UNK
  10. SIMVASTATIN [Concomitant]
     Dosage: 40 MG ON
  11. AMISULPRIDE [Concomitant]
     Dosage: 100 MG, TID (1 AT LUNCH TIME, 1 AT TEA TIME AND 1 AT NIGHT)
  12. AMISULPRIDE [Concomitant]
     Dosage: 200 MG OM
  13. LAXIDO [Concomitant]
     Dosage: 1 DF, PRN
  14. ORAMORPH [Concomitant]
     Indication: PAIN
     Dosage: 10 MG/5 ML 5 TO 10 ML 1 HOURLY
  15. CALOGEN//ARACHIS HYPOGAEA OIL [Concomitant]
     Dosage: 40 ML, TID
  16. METOCLOPRAMID//METOCLOPRAMIDE HYDROCHLORIDE [Concomitant]
     Dosage: 10 MG, TID PRN
  17. BUCCASTEM [Concomitant]
     Dosage: 3 MG, BID PRN
  18. FORTISIP [Concomitant]
     Dosage: 2 UKN DAILY
  19. FORTISIP [Concomitant]
     Dosage: 200 ML, BID
  20. DIAZEPAM [Concomitant]
     Dosage: 2 MG, BID PRN
  21. DIAMORPHINE HYDROCHLORIDE [Concomitant]
     Indication: PAIN
     Dosage: 2.5 MG TO 5 MG 2 HOURLY

REACTIONS (6)
  - Oesophageal carcinoma [Fatal]
  - Neoplasm malignant [Fatal]
  - General physical health deterioration [Unknown]
  - White blood cell count increased [Unknown]
  - Neutrophil count increased [Unknown]
  - Platelet count increased [Unknown]
